FAERS Safety Report 25253065 (Version 1)
Quarter: 2025Q2

REPORT INFORMATION
  Report Type: Report from Study
  Country: US (occurrence: US)
  Receive Date: 20250430
  Receipt Date: 20250430
  Transmission Date: 20250716
  Serious: Yes (Hospitalization, Other)
  Sender: ABBVIE
  Company Number: US-ABBVIE-6245860

PATIENT
  Age: 52 Year
  Sex: Female

DRUGS (4)
  1. HUMIRA [Suspect]
     Active Substance: ADALIMUMAB
     Indication: Colitis ulcerative
     Route: 058
     Dates: start: 2024
  2. RINVOQ [Suspect]
     Active Substance: UPADACITINIB
     Indication: Colitis ulcerative
     Route: 048
     Dates: start: 202503
  3. ZEPOSIA [Suspect]
     Active Substance: OZANIMOD HYDROCHLORIDE
     Indication: Product used for unknown indication
     Route: 065
  4. ZEPOSIA [Suspect]
     Active Substance: OZANIMOD HYDROCHLORIDE
     Indication: Product used for unknown indication
     Route: 065

REACTIONS (14)
  - Hospitalisation [Unknown]
  - Fluid retention [Unknown]
  - Malaise [Unknown]
  - Cough [Unknown]
  - Abdominal distension [Unknown]
  - Weight increased [Unknown]
  - Drug ineffective [Unknown]
  - Anaemia [Unknown]
  - Ear pain [Unknown]
  - Oropharyngeal pain [Unknown]
  - Pharyngeal swelling [Unknown]
  - Swelling [Unknown]
  - Dysphagia [Unknown]
  - Colitis ulcerative [Unknown]

NARRATIVE: CASE EVENT DATE: 20250101
